FAERS Safety Report 10008182 (Version 2)
Quarter: 2014Q1

REPORT INFORMATION
  Report Type: Spontaneous
  Country: US (occurrence: US)
  Receive Date: 20140313
  Receipt Date: 20140313
  Transmission Date: 20141002
  Serious: No
  Sender: FDA-Public Use
  Company Number: US-GILEAD-2013-0073314

PATIENT
  Sex: Male

DRUGS (2)
  1. LETAIRIS [Suspect]
     Indication: PULMONARY HYPERTENSION
     Dosage: 5 MG, QD
     Dates: start: 20130323
  2. LETAIRIS [Suspect]
     Indication: HEPATIC CIRRHOSIS

REACTIONS (5)
  - Cough [Unknown]
  - Dyspnoea [Unknown]
  - Dizziness [Unknown]
  - Rhinorrhoea [Unknown]
  - Swelling [Unknown]
